FAERS Safety Report 11776303 (Version 2)
Quarter: 2015Q4

REPORT INFORMATION
  Report Type: Spontaneous
  Country: US (occurrence: US)
  Receive Date: 20151125
  Receipt Date: 20151216
  Transmission Date: 20160304
  Serious: Yes (Death, Other)
  Sender: FDA-Public Use
  Company Number: US-PFIZER INC-2015389933

PATIENT
  Age: 66 Year
  Sex: Female
  Weight: 90.71 kg

DRUGS (19)
  1. SPIRIVA [Concomitant]
     Active Substance: TIOTROPIUM BROMIDE MONOHYDRATE
     Dosage: 1 DF, DAILY
  2. PAXIL [Concomitant]
     Active Substance: PAROXETINE HYDROCHLORIDE
     Dosage: 20 MG, DAILY
  3. ASPIRIN. [Concomitant]
     Active Substance: ASPIRIN
     Dosage: 81 MG, 1X/DAY (81 MG PO QDWM)
     Route: 048
  4. SENNA PLUS [Concomitant]
     Active Substance: DOCUSATE SODIUM\SENNOSIDES\SENNOSIDES A AND B
     Dosage: UNK (1 EACH PO HS)
     Route: 048
  5. GABAPENTIN. [Concomitant]
     Active Substance: GABAPENTIN
     Dosage: 600 MG, 2X/DAY
     Route: 048
  6. FUROSEMIDE. [Concomitant]
     Active Substance: FUROSEMIDE
     Dosage: 40 MG, DAILY
     Route: 048
  7. LETROZOLE. [Suspect]
     Active Substance: LETROZOLE
     Dosage: 2.5 MG, DAILY
     Route: 048
  8. FERROUS SULFATE [Concomitant]
     Active Substance: FERROUS SULFATE\FERROUS SULFATE, DRIED
     Dosage: 325 MG, 2X/DAY
     Route: 048
  9. IBRANCE [Suspect]
     Active Substance: PALBOCICLIB
     Dosage: 125 MG, DAILY (125 MG PO QDWM)
     Route: 048
  10. DELTASONE [Concomitant]
     Active Substance: PREDNISONE
     Dosage: 50 MG, DAILY
     Route: 048
  11. OMEPRAZOLE. [Concomitant]
     Active Substance: OMEPRAZOLE
     Dosage: 40 MG, DAILY
     Route: 048
  12. ACETAMINOPHEN W/HYDROCODONE [Concomitant]
     Active Substance: ACETAMINOPHEN\HYDROCODONE
     Dosage: UNK (2 EACH PO Q4HR) (HYDROCODON: 75; ACETAMINOPH: 325 )
  13. VENTOLIN HFA [Concomitant]
     Active Substance: ALBUTEROL SULFATE
     Dosage: UNK (1 - 2 PUFFS IH Q4HP PRN)
  14. PROVENTIL [Concomitant]
     Active Substance: ALBUTEROL
     Dosage: 2.5 MG, UNK (IH Q4HP PRN) (2.5 MG/3 ML NEBS SOLN)
  15. DELTASONE [Concomitant]
     Active Substance: PREDNISONE
     Dosage: 60 MG, DAILY
     Route: 048
  16. ALBUTEROL SULFATE. [Concomitant]
     Active Substance: ALBUTEROL SULFATE
     Dosage: UNK (1 VIAL IH Q4HR PRN)
  17. IBRANCE [Suspect]
     Active Substance: PALBOCICLIB
     Dosage: 125 MG, CYCLIC (QD FOR 21 DAYS OF 28 DAY CYCLE)
     Route: 048
  18. DELTASONE [Concomitant]
     Active Substance: PREDNISONE
     Dosage: 2 DF, DAILY
     Route: 048
  19. CALCIUM [Concomitant]
     Active Substance: CALCIUM
     Dosage: 600 MG, 2X/DAY
     Route: 048

REACTIONS (6)
  - Cardio-respiratory arrest [Fatal]
  - Disease progression [Fatal]
  - Myocardial infarction [Fatal]
  - Breast cancer metastatic [Fatal]
  - Measles [Unknown]
  - Pain [Unknown]
